FAERS Safety Report 21397541 (Version 3)
Quarter: 2023Q1

REPORT INFORMATION
  Report Type: Spontaneous
  Country: TR (occurrence: TR)
  Receive Date: 20220930
  Receipt Date: 20230104
  Transmission Date: 20230417
  Serious: Yes (Hospitalization, Other)
  Sender: FDA-Public Use
  Company Number: TR-AMGEN-TURSP2022165412

PATIENT
  Age: 9 Year
  Sex: Male

DRUGS (2)
  1. BLINCYTO [Suspect]
     Active Substance: BLINATUMOMAB
     Indication: Intracranial pressure increased
     Dosage: FIRST DOSE OF 24 HOURS, THEN THE 3-DAY DOSE OF 72 HOURS
     Route: 065
     Dates: start: 20220809, end: 20220818
  2. BLINCYTO [Suspect]
     Active Substance: BLINATUMOMAB
     Indication: B precursor type acute leukaemia
     Dosage: 3-DAY DOSE OF 72 HOURS
     Route: 065
     Dates: start: 202208

REACTIONS (1)
  - Subarachnoid haemorrhage [Recovering/Resolving]

NARRATIVE: CASE EVENT DATE: 20220801
